FAERS Safety Report 5920200-9 (Version None)
Quarter: 2008Q4

REPORT INFORMATION
  Report Type: 
  Country: None (occurrence: None)
  Receive Date: 20081014
  Receipt Date: 20081002
  Transmission Date: 20090506
  Serious: Yes (Other)
  Sender: FDA-Public Use
  Company Number: US023953

PATIENT
  Age: 18 Year
  Sex: Female
  Weight: 90 kg

DRUGS (2)
  1. MODAFINIL [Suspect]
     Indication: CATAPLEXY
     Dosage: 200 MG QD ORAL
     Route: 048
     Dates: start: 20020101
  2. MODAFINIL [Suspect]
     Indication: NARCOLEPSY
     Dosage: 200 MG QD ORAL
     Route: 048
     Dates: start: 20020101

REACTIONS (2)
  - CONDITION AGGRAVATED [None]
  - VISUAL ACUITY REDUCED [None]
